FAERS Safety Report 15232714 (Version 1)
Quarter: 2018Q3

REPORT INFORMATION
  Report Type: Spontaneous
  Country: US (occurrence: US)
  Receive Date: 20180802
  Receipt Date: 20180802
  Transmission Date: 20181010
  Serious: Yes (Other)
  Sender: FDA-Public Use
  Company Number: US-ASTRAZENECA-2018SE96180

PATIENT
  Age: 27937 Day
  Sex: Female
  Weight: 64.4 kg

DRUGS (20)
  1. CELEXA [Concomitant]
     Active Substance: CITALOPRAM HYDROBROMIDE
  2. CALCIUM CITRATE [Concomitant]
     Active Substance: CALCIUM CITRATE
  3. SUPER B COMPLEX [Concomitant]
     Active Substance: CYANOCOBALAMIN\DEXPANTHENOL\NIACINAMIDE\PYRIDOXINE HYDROCHLORIDE\RIBOFLAVIN 5^-PHOSPHATE SODIUM\THIAMINE HYDROCHLORIDE\VITAMIN B COMPLEX
  4. PRILOSEC [Suspect]
     Active Substance: OMEPRAZOLE MAGNESIUM
     Indication: HIATUS HERNIA
     Dosage: 20.0MG UNKNOWN
     Route: 048
     Dates: start: 2004
  5. LASIX [Concomitant]
     Active Substance: FUROSEMIDE
     Route: 065
  6. ALTACE [Concomitant]
     Active Substance: RAMIPRIL
  7. AMBIEN [Concomitant]
     Active Substance: ZOLPIDEM TARTRATE
  8. GABAPENTIN. [Concomitant]
     Active Substance: GABAPENTIN
  9. BENADRYL [Concomitant]
     Active Substance: DIPHENHYDRAMINE HYDROCHLORIDE
     Dosage: FOUR TIMES A DAY
  10. SPIRONOLACTONE. [Concomitant]
     Active Substance: SPIRONOLACTONE
     Route: 065
  11. MAGNESIUM [Concomitant]
     Active Substance: MAGNESIUM
  12. VALIUM [Concomitant]
     Active Substance: DIAZEPAM
  13. MUCINEX DM [Concomitant]
     Active Substance: DEXTROMETHORPHAN HYDROBROMIDE\GUAIFENESIN
     Indication: HYPERSENSITIVITY
     Dosage: TWO TIMES A DAY
  14. SYMBICORT [Suspect]
     Active Substance: BUDESONIDE\FORMOTEROL FUMARATE DIHYDRATE
     Indication: DYSPNOEA
     Dosage: 160/4.5 MCG TWO INHALATIONS TWICE A DAY
     Route: 055
     Dates: start: 20180725
  15. ATORVASTATIN [Concomitant]
     Active Substance: ATORVASTATIN
  16. PROLIA [Concomitant]
     Active Substance: DENOSUMAB
     Indication: OSTEOPOROSIS
     Dosage: EVERY SIX MONTHS
  17. VITAMIN B NOS [Concomitant]
     Active Substance: VITAMIN B
  18. VITAMIN C [Concomitant]
     Active Substance: ASCORBIC ACID
  19. CLARITIN [Concomitant]
     Active Substance: LORATADINE
     Indication: HYPERSENSITIVITY
  20. ZYPREXA [Concomitant]
     Active Substance: OLANZAPINE
     Indication: HYPERSENSITIVITY

REACTIONS (11)
  - Nervousness [Not Recovered/Not Resolved]
  - Agitation [Not Recovered/Not Resolved]
  - Osteoporosis [Not Recovered/Not Resolved]
  - Product use in unapproved indication [Unknown]
  - Off label use [Unknown]
  - Chest pain [Not Recovered/Not Resolved]
  - Cataract [Not Recovered/Not Resolved]
  - Cardiac disorder [Not Recovered/Not Resolved]
  - Pneumonia [Unknown]
  - Hypersensitivity [Not Recovered/Not Resolved]
  - Renal failure [Not Recovered/Not Resolved]

NARRATIVE: CASE EVENT DATE: 20180725
